FAERS Safety Report 14728385 (Version 11)
Quarter: 2019Q2

REPORT INFORMATION
  Report Type: Report from Study
  Country: IT (occurrence: IT)
  Receive Date: 20180406
  Receipt Date: 20190524
  Transmission Date: 20190711
  Serious: Yes (Hospitalization, Other)
  Sender: FDA-Public Use
  Company Number: IT-PFIZER INC-2018140535

PATIENT
  Age: 79 Year
  Sex: Female

DRUGS (9)
  1. CONGESCOR [Suspect]
     Active Substance: BISOPROLOL
     Dosage: 1 DF, 1X/DAY
     Route: 048
     Dates: start: 20180101, end: 20180322
  2. LANSOPRAZOLE. [Suspect]
     Active Substance: LANSOPRAZOLE
     Dosage: 1 DF, 1X/DAY
     Route: 048
     Dates: start: 20180101, end: 20180322
  3. CALCITRIOL. [Concomitant]
     Active Substance: CALCITRIOL
     Dosage: UNK
     Route: 065
  4. TORVAST [Suspect]
     Active Substance: ATORVASTATIN
     Dosage: 1 DF, 1X/DAY
     Route: 048
     Dates: start: 20180101, end: 20180322
  5. ALLOPURINOL. [Suspect]
     Active Substance: ALLOPURINOL
     Dosage: 1 DF, 1X/DAY
     Route: 048
     Dates: start: 20180101, end: 20180322
  6. XANAX [Suspect]
     Active Substance: ALPRAZOLAM
     Dosage: 0.25 MG, QD
     Route: 048
     Dates: start: 20180101, end: 20180322
  7. TAPAZOLE [Suspect]
     Active Substance: METHIMAZOLE
     Dosage: 5 MG, QD
     Route: 048
     Dates: start: 20180101, end: 20180322
  8. RIVOTRIL [Suspect]
     Active Substance: CLONAZEPAM
     Dosage: 2.5 MG, UNK
     Route: 048
     Dates: start: 20180101, end: 20180322
  9. FUROSEMIDE. [Concomitant]
     Active Substance: FUROSEMIDE
     Dosage: UNK
     Route: 065

REACTIONS (3)
  - Vomiting [Unknown]
  - Abdominal pain [Unknown]
  - Hepatitis [Unknown]

NARRATIVE: CASE EVENT DATE: 20180322
